FAERS Safety Report 14106719 (Version 1)
Quarter: 2017Q4

REPORT INFORMATION
  Report Type: Spontaneous
  Country: US (occurrence: US)
  Receive Date: 20171019
  Receipt Date: 20171019
  Transmission Date: 20180321
  Serious: No
  Sender: FDA-Public Use
  Company Number: US-009507513-1710USA008069

PATIENT
  Age: 2 Year
  Sex: Female

DRUGS (3)
  1. BEVACIZUMAB. [Concomitant]
     Active Substance: BEVACIZUMAB
     Indication: CHOROID PLEXUS CARCINOMA
     Dosage: 10 MG/KG, 3 CYCLES
     Dates: start: 201209, end: 201211
  2. TEMODAR [Suspect]
     Active Substance: TEMOZOLOMIDE
     Indication: CHOROID PLEXUS CARCINOMA
     Dosage: 140 MG/M2, X 5, 3 CYCLES
     Route: 048
     Dates: start: 201209, end: 201211
  3. IRINOTECAN HYDROCHLORIDE. [Concomitant]
     Active Substance: IRINOTECAN HYDROCHLORIDE
     Indication: CHOROID PLEXUS CARCINOMA
     Dosage: 125 MG/M2, 3 CYCLES
     Dates: start: 201209, end: 201211

REACTIONS (2)
  - Full blood count decreased [Unknown]
  - Product use issue [Unknown]

NARRATIVE: CASE EVENT DATE: 2012
